FAERS Safety Report 8520628-7 (Version None)
Quarter: 2012Q3

REPORT INFORMATION
  Report Type: 
  Country: None (occurrence: None)
  Receive Date: 20120713
  Receipt Date: 20120713
  Transmission Date: 20120928
  Serious: Yes (Other)
  Sender: FDA-Public Use
  Company Number: None

PATIENT
  Age: 85 Year
  Sex: Female
  Weight: 62.5964 kg

DRUGS (2)
  1. PROLIA [Suspect]
     Indication: BONE DISORDER
     Dosage: SHOT 3 MO. HIP  2 SHOTS, JAN AND JUNE
     Dates: start: 20120601
  2. PROLIA [Suspect]
     Indication: BONE DISORDER
     Dosage: SHOT 3 MO. HIP  2 SHOTS, JAN AND JUNE
     Dates: start: 20120101

REACTIONS (3)
  - BONE PAIN [None]
  - ARTHRALGIA [None]
  - CONDITION AGGRAVATED [None]
